FAERS Safety Report 25942972 (Version 1)
Quarter: 2025Q4

REPORT INFORMATION
  Report Type: Spontaneous
  Country: CH (occurrence: CH)
  Receive Date: 20251021
  Receipt Date: 20251021
  Transmission Date: 20260118
  Serious: Yes (Life-Threatening, Hospitalization, Other)
  Sender: BAXTER
  Company Number: None

PATIENT
  Age: 20 Year
  Sex: Male

DRUGS (7)
  1. CYCLOPHOSPHAMIDE [Suspect]
     Active Substance: CYCLOPHOSPHAMIDE
     Dosage: 5100 MG, QD
     Route: 042
     Dates: start: 20250822, end: 20250823
  2. CYCLOPHOSPHAMIDE [Suspect]
     Active Substance: CYCLOPHOSPHAMIDE
     Dosage: AS PART OF COMBINED CHEMOTHERAPY, NO FURTHER DETAILS AVAILABLE
     Route: 065
     Dates: start: 20241129, end: 20250711
  3. MEROPENEM [Concomitant]
     Active Substance: MEROPENEM
     Dosage: 2 G, 8 H
     Route: 042
     Dates: start: 20250828, end: 20250909
  4. CYCLOSPORINE [Concomitant]
     Active Substance: CYCLOSPORINE
     Dosage: 275 MG, 12 H
     Route: 048
     Dates: start: 20250825, end: 20250906
  5. SULFAMETHOXAZOLE\TRIMETHOPRIM [Concomitant]
     Active Substance: SULFAMETHOXAZOLE\TRIMETHOPRIM
     Dosage: 1 DOSAGE FORM, BID (SULFAMETHOXAZOLE: 800 MG AND TRIMETHOPRIM: 160 MG)
     Route: 048
     Dates: start: 20250905, end: 20250908
  6. DIFLUCAN [Concomitant]
     Active Substance: FLUCONAZOLE
     Dosage: 400 MG, 1X A WEEK
     Route: 048
     Dates: start: 20250902, end: 20250909
  7. CYCLOSPORINE [Concomitant]
     Active Substance: CYCLOSPORINE
     Dosage: 275 MG, 12 H, BREAK ON SEPTEMBER 7 IN THE EVENING DUE TO RISING KIDNEY VALUES
     Route: 042
     Dates: start: 20250906, end: 20250908

REACTIONS (1)
  - Acute hepatic failure [Recovering/Resolving]

NARRATIVE: CASE EVENT DATE: 20250909
